FAERS Safety Report 10752353 (Version 7)
Quarter: 2016Q1

REPORT INFORMATION
  Report Type: Report from Study
  Country: CA (occurrence: CA)
  Receive Date: 20150130
  Receipt Date: 20160216
  Transmission Date: 20160525
  Serious: No
  Sender: FDA-Public Use
  Company Number: PHHY2014CA168391

PATIENT
  Sex: Female

DRUGS (1)
  1. TASIGNA [Suspect]
     Active Substance: NILOTINIB
     Indication: CHRONIC MYELOID LEUKAEMIA
     Dosage: 300 MG, BID
     Route: 048
     Dates: start: 20141118

REACTIONS (5)
  - Bone pain [Unknown]
  - Pruritus [Unknown]
  - Intraocular pressure increased [Unknown]
  - Acne [Recovered/Resolved]
  - Hepatic enzyme increased [Unknown]
